FAERS Safety Report 9046808 (Version 1)
Quarter: 2013Q1

REPORT INFORMATION
  Report Type: Spontaneous
  Country: US (occurrence: None)
  Receive Date: 20130128
  Receipt Date: 20130128
  Transmission Date: 20140127
  Serious: Yes (Death)
  Sender: FDA-Public Use
  Company Number: None

PATIENT
  Age: 63 Year
  Sex: Male

DRUGS (4)
  1. IFOSFAMIDE [Suspect]
     Indication: ACUTE LYMPHOCYTIC LEUKAEMIA
     Dosage: 3330MG/M2/DCIVI
     Dates: start: 20121224, end: 20130103
  2. MESNA [Suspect]
     Indication: ACUTE LYMPHOCYTIC LEUKAEMIA
     Dosage: 2660 MG/M2/DIV
     Route: 042
     Dates: start: 20121224, end: 20130103
  3. ETOPOSIDE [Suspect]
     Indication: ACUTE LYMPHOCYTIC LEUKAEMIA
     Dosage: 150 MG/M2 IV
     Route: 042
     Dates: start: 20121224, end: 20130103
  4. DEXAMETHASONE [Suspect]
     Indication: ACUTE LYMPHOCYTIC LEUKAEMIA
     Dosage: 5 MG/M2 PO
     Route: 048
     Dates: start: 20121224, end: 20130103

REACTIONS (2)
  - Pulmonary embolism [None]
  - General physical health deterioration [None]
